FAERS Safety Report 19879309 (Version 23)
Quarter: 2023Q1

REPORT INFORMATION
  Report Type: Spontaneous
  Country: CA (occurrence: CA)
  Receive Date: 20210923
  Receipt Date: 20230212
  Transmission Date: 20230418
  Serious: Yes (Other)
  Sender: FDA-Public Use
  Company Number: CA-CELLTRION INC.-2021CA012759

PATIENT

DRUGS (30)
  1. INFLECTRA [Suspect]
     Active Substance: INFLIXIMAB-DYYB
     Indication: Crohn^s disease
     Dosage: 5 MG/KG, INDUCTION DOSES AT WEEK 0, 2 AND 6, THEN EVERY 8 WEEKS
     Route: 042
     Dates: start: 20210423, end: 20210916
  2. INFLECTRA [Suspect]
     Active Substance: INFLIXIMAB-DYYB
     Dosage: 5 MG/KG, AT 0, 2, 6 THEN EVERY 8 WEEKS
     Route: 042
     Dates: start: 20210603
  3. INFLECTRA [Suspect]
     Active Substance: INFLIXIMAB-DYYB
     Dosage: 5 MG/KG, AT 0, 2, 6 THEN EVERY 8 WEEKS
     Route: 042
     Dates: start: 20210729
  4. INFLECTRA [Suspect]
     Active Substance: INFLIXIMAB-DYYB
     Dosage: 5 MG/KG, AT 0, 2, 6 THEN EVERY 8 WEEKS
     Route: 042
     Dates: start: 20210916
  5. INFLECTRA [Suspect]
     Active Substance: INFLIXIMAB-DYYB
     Dosage: 5 MG/KG, EVERY 4 WEEKS (ROUND TO NEAREST VIAL)
     Route: 042
     Dates: start: 20211014, end: 20221109
  6. INFLECTRA [Suspect]
     Active Substance: INFLIXIMAB-DYYB
     Dosage: 5 MG/KG, EVERY 4 WEEKS (ROUND TO NEAREST VIAL)
     Route: 042
     Dates: start: 20211014, end: 20211109
  7. INFLECTRA [Suspect]
     Active Substance: INFLIXIMAB-DYYB
     Dosage: 5 MG/KG, EVERY 4 WEEKS (ROUND TO NEAREST VIAL)
     Route: 042
     Dates: start: 20211014
  8. INFLECTRA [Suspect]
     Active Substance: INFLIXIMAB-DYYB
     Dosage: 5 MG/KG, EVERY 4 WEEKS (ROUND TO NEAREST VIAL)
     Route: 042
     Dates: start: 20211109
  9. INFLECTRA [Suspect]
     Active Substance: INFLIXIMAB-DYYB
     Dosage: 10 MG/KG, EVERY 4 WEEKS (ROUND TO NEAREST VIAL)
     Route: 042
     Dates: start: 20211209
  10. INFLECTRA [Suspect]
     Active Substance: INFLIXIMAB-DYYB
     Dosage: 10 MG/KG, EVERY 4 WEEKS (ROUND TO NEAREST VIAL)
     Route: 042
     Dates: start: 20220106
  11. INFLECTRA [Suspect]
     Active Substance: INFLIXIMAB-DYYB
     Dosage: 10 MG/KG, EVERY 4 WEEKS (ROUND TO NEAREST VIAL)
     Route: 042
     Dates: start: 20220203
  12. INFLECTRA [Suspect]
     Active Substance: INFLIXIMAB-DYYB
     Dosage: 930 MG (10 MG/KG), EVERY 4 WEEKS (ROUNDED TO THE NEAREST VIAL)
     Route: 042
     Dates: start: 20220303
  13. INFLECTRA [Suspect]
     Active Substance: INFLIXIMAB-DYYB
     Dosage: 10 MG/KG, EVERY 4 WEEKS (ROUNDED TO THE NEAREST VIAL)
     Route: 042
     Dates: start: 20220331
  14. INFLECTRA [Suspect]
     Active Substance: INFLIXIMAB-DYYB
     Dosage: 900 MG (10 MG/KG), EVERY 4 WEEKS (ROUNDED TO THE NEAREST VIAL)
     Route: 042
     Dates: start: 20220428
  15. INFLECTRA [Suspect]
     Active Substance: INFLIXIMAB-DYYB
     Dosage: 10 MG/KG, EVERY 4 WEEKS (ROUNDED TO THE NEAREST VIAL)
     Route: 042
     Dates: start: 20220525
  16. INFLECTRA [Suspect]
     Active Substance: INFLIXIMAB-DYYB
     Dosage: 10 MG/KG, EVERY 4 WEEKS (ROUNDED TO THE NEAREST VIAL)
     Route: 042
     Dates: start: 20220622
  17. INFLECTRA [Suspect]
     Active Substance: INFLIXIMAB-DYYB
     Dosage: 10 MG/KG, EVERY 4 WEEKS (ROUNDED TO THE NEAREST VIAL)
     Route: 042
     Dates: start: 20220622
  18. INFLECTRA [Suspect]
     Active Substance: INFLIXIMAB-DYYB
     Dosage: 10 MG/KG, EVERY 4 WEEKS (ROUNDED TO THE NEAREST VIAL)
     Route: 042
     Dates: start: 20220719
  19. INFLECTRA [Suspect]
     Active Substance: INFLIXIMAB-DYYB
     Dosage: 10 MG/KG EVERY 4 WEEKS (ROUNDED TO THE NEAREST VIAL)
     Route: 042
     Dates: start: 20220817
  20. INFLECTRA [Suspect]
     Active Substance: INFLIXIMAB-DYYB
     Dosage: 10 MG/KG EVERY 4 WEEKS (ROUNDED TO THE NEAREST VIAL)
     Route: 042
     Dates: start: 20220915
  21. INFLECTRA [Suspect]
     Active Substance: INFLIXIMAB-DYYB
     Dosage: 900 MG (PATIENT IS SUPPOSED TO RECEIVE 10 MG/KG),EVERY 4 WEEKS (ROUNDED TO THE NEAREST VIAL)
     Route: 042
     Dates: start: 20221013
  22. INFLECTRA [Suspect]
     Active Substance: INFLIXIMAB-DYYB
     Dosage: 900 MG (PATIENT IS SUPPOSED TO RECEIVE 10 MG/KG),EVERY 4 WEEKS (ROUNDED TO THE NEAREST VIAL)
     Route: 042
     Dates: start: 20221110
  23. INFLECTRA [Suspect]
     Active Substance: INFLIXIMAB-DYYB
     Dosage: 900 MG (PATIENT IS SUPPOSED TO RECEIVE 10 MG/KG),EVERY 4 WEEKS (ROUNDED TO THE NEAREST VIAL)
     Route: 042
     Dates: start: 20221110
  24. INFLECTRA [Suspect]
     Active Substance: INFLIXIMAB-DYYB
     Dosage: 10 MG/KG EVERY 4 WEEKS ROUND TO NEAREST VIAL
     Route: 042
     Dates: start: 20221208
  25. INFLECTRA [Suspect]
     Active Substance: INFLIXIMAB-DYYB
     Dosage: 10 MG/KG EVERY 4 WEEKS ROUND TO NEAREST VIAL
     Route: 042
     Dates: start: 20230105
  26. INFLECTRA [Suspect]
     Active Substance: INFLIXIMAB-DYYB
     Dosage: 10 MG/KG EVERY 4 WEEKS ROUND TO NEAREST VIAL
     Route: 042
     Dates: start: 20230202
  27. PREDNISONE [Concomitant]
     Active Substance: PREDNISONE
     Dosage: 1 DF
     Dates: start: 202108
  28. PREDNISONE [Concomitant]
     Active Substance: PREDNISONE
     Dosage: 1 DF, DOSAGE NOT AVAILABLE
     Route: 065
  29. VITAMIN D [Concomitant]
     Active Substance: VITAMIN D NOS
     Dosage: 1 DF
  30. VITAMIN D [Concomitant]
     Active Substance: VITAMIN D NOS
     Dosage: 1 DF, DOSAGE NOT AVAILABLE
     Route: 065

REACTIONS (17)
  - Condition aggravated [Not Recovered/Not Resolved]
  - Drug level decreased [Unknown]
  - Arthralgia [Recovered/Resolved]
  - Arthropathy [Unknown]
  - Discomfort [Recovered/Resolved]
  - Fistula [Recovered/Resolved]
  - Spinal column injury [Recovering/Resolving]
  - Psoriasis [Not Recovered/Not Resolved]
  - Weight increased [Unknown]
  - Frequent bowel movements [Not Recovered/Not Resolved]
  - Exposure to SARS-CoV-2 [Unknown]
  - Arthralgia [Unknown]
  - Faeces soft [Not Recovered/Not Resolved]
  - Anal fistula [Recovering/Resolving]
  - Fistula discharge [Not Recovered/Not Resolved]
  - Stress at work [Unknown]
  - Off label use [Unknown]

NARRATIVE: CASE EVENT DATE: 20210101
